FAERS Safety Report 25129101 (Version 1)
Quarter: 2025Q1

REPORT INFORMATION
  Report Type: Spontaneous
  Country: US (occurrence: US)
  Receive Date: 20250327
  Receipt Date: 20250327
  Transmission Date: 20250409
  Serious: No
  Sender: ANI
  Company Number: US-ANIPHARMA-2024-US-059893

PATIENT
  Age: 56 Year
  Sex: Male

DRUGS (1)
  1. CORTICOTROPIN [Suspect]
     Active Substance: CORTICOTROPIN
     Indication: Multiple sclerosis
     Route: 058
     Dates: start: 20241028

REACTIONS (7)
  - Gout [Unknown]
  - Pain in extremity [Unknown]
  - Psychomotor hyperactivity [Unknown]
  - Peripheral swelling [Unknown]
  - Drug ineffective [Unknown]
  - Gait disturbance [Unknown]
  - Pain in extremity [Unknown]
